FAERS Safety Report 8405257-8 (Version None)
Quarter: 2012Q2

REPORT INFORMATION
  Report Type: 
  Country: None (occurrence: None)
  Receive Date: 20120603
  Receipt Date: 20120511
  Transmission Date: 20120825
  Serious: No
  Sender: FDA-Public Use
  Company Number: US-BAYER-2012-047010

PATIENT
  Age: 89 Year
  Sex: Female
  Weight: 53.515 kg

DRUGS (5)
  1. ALEVE (CAPLET) [Suspect]
     Dosage: UNK
  2. CHOLESTEROL [Concomitant]
  3. WATER [Concomitant]
  4. ALEVE (CAPLET) [Suspect]
     Indication: ANALGESIC THERAPY
     Dosage: UNK UNK, BID
     Route: 048
  5. CALCIUM [Concomitant]

REACTIONS (1)
  - NO ADVERSE EVENT [None]
